FAERS Safety Report 20526487 (Version 1)
Quarter: 2022Q1

REPORT INFORMATION
  Report Type: Spontaneous
  Country: US (occurrence: None)
  Receive Date: 20220225
  Receipt Date: 20220225
  Transmission Date: 20220423
  Serious: No
  Sender: FDA-Public Use
  Company Number: None

PATIENT
  Age: 77 Year
  Sex: Female
  Weight: 92.7 kg

DRUGS (22)
  1. IBRANCE [Suspect]
     Active Substance: PALBOCICLIB
     Indication: Breast cancer
     Dosage: OTHER FREQUENCY : QD FOR 21/28 DAYS;?
     Route: 048
     Dates: start: 20180626
  2. LETROZOLE [Concomitant]
     Active Substance: LETROZOLE
  3. LANTUS SOLOSTAR [Concomitant]
     Active Substance: INSULIN GLARGINE
  4. APIDRA SOLOSTAR [Concomitant]
     Active Substance: INSULIN GLULISINE
  5. BACLOFEN [Concomitant]
     Active Substance: BACLOFEN
  6. HYDROXYZINE [Concomitant]
     Active Substance: HYDROXYZINE HYDROCHLORIDE
  7. METFORMIN [Concomitant]
     Active Substance: METFORMIN HYDROCHLORIDE
  8. VALSARTAN [Concomitant]
     Active Substance: VALSARTAN
  9. ARMOUR THYROID [Concomitant]
     Active Substance: THYROID, PORCINE
  10. CYMBALTA [Concomitant]
     Active Substance: DULOXETINE HYDROCHLORIDE
  11. CARVEDILOL [Concomitant]
     Active Substance: CARVEDILOL
  12. OMEPRAZOLE [Concomitant]
     Active Substance: OMEPRAZOLE
  13. Vitamin D3 2000IU [Concomitant]
  14. ROPINIROLE [Concomitant]
     Active Substance: ROPINIROLE
  15. Magnesium 500mg [Concomitant]
  16. Tricor 145mg [Concomitant]
  17. ACETAMINOPHEN\HYDROCODONE BITARTRATE [Concomitant]
     Active Substance: ACETAMINOPHEN\HYDROCODONE BITARTRATE
  18. Flector 1.3% [Concomitant]
  19. ASPIRIN [Concomitant]
     Active Substance: ASPIRIN
  20. Acetaminophen 325mg [Concomitant]
  21. Alka-Seltzer 325mg [Concomitant]
  22. Ex-Lax 15mg [Concomitant]

REACTIONS (2)
  - Gastrooesophageal reflux disease [None]
  - Intervertebral disc protrusion [None]

NARRATIVE: CASE EVENT DATE: 20220225
